FAERS Safety Report 6983205-5 (Version None)
Quarter: 2010Q3

REPORT INFORMATION
  Report Type: 
  Country: None (occurrence: None)
  Receive Date: 20100910
  Receipt Date: 20100907
  Transmission Date: 20110219
  Serious: Yes (Other)
  Sender: FDA-Public Use
  Company Number: 20109161

PATIENT
  Sex: Male

DRUGS (1)
  1. LIORESAL [Suspect]
     Indication: MUSCLE SPASTICITY
     Dosage: INTRATHECAL
     Route: 037

REACTIONS (8)
  - DEVICE DISLOCATION [None]
  - DEVICE MATERIAL ISSUE [None]
  - DYSURIA [None]
  - FEELING HOT [None]
  - HYPERHIDROSIS [None]
  - HYPERTONIA [None]
  - PRURITUS [None]
  - UNDERDOSE [None]
